FAERS Safety Report 19100386 (Version 1)
Quarter: 2021Q2

REPORT INFORMATION
  Report Type: Spontaneous
  Country: UY (occurrence: UY)
  Receive Date: 20210407
  Receipt Date: 20210407
  Transmission Date: 20210717
  Serious: Yes (Other)
  Sender: FDA-Public Use
  Company Number: UY-JNJFOC-20210407749

PATIENT
  Age: 73 Year
  Sex: Male

DRUGS (1)
  1. XARELTO [Suspect]
     Active Substance: RIVAROXABAN
     Indication: ATRIAL FIBRILLATION
     Dosage: UNK
     Route: 048
     Dates: start: 2019, end: 202102

REACTIONS (4)
  - Bladder neoplasm [Unknown]
  - Haemorrhage urinary tract [Not Recovered/Not Resolved]
  - Tumour haemorrhage [Unknown]
  - Haematuria [Unknown]
